FAERS Safety Report 18899191 (Version 2)
Quarter: 2021Q2

REPORT INFORMATION
  Report Type: Report from Study
  Country: US (occurrence: US)
  Receive Date: 20210216
  Receipt Date: 20210427
  Transmission Date: 20210717
  Serious: Yes (Other)
  Sender: FDA-Public Use
  Company Number: US-CLOVIS ONCOLOGY-CLO-2021-000134

PATIENT
  Sex: Male

DRUGS (1)
  1. RUBRACA [Suspect]
     Active Substance: RUCAPARIB CAMSYLATE
     Indication: PROSTATE CANCER
     Dosage: 600 MILLIGRAM, BID
     Route: 048
     Dates: start: 202011, end: 20210209

REACTIONS (6)
  - Renal injury [Unknown]
  - Adverse event [Unknown]
  - Liver injury [Unknown]
  - Arthritis [Unknown]
  - Drug intolerance [Unknown]
  - Blood test abnormal [Unknown]
